FAERS Safety Report 9220640 (Version 1)
Quarter: 2013Q2

REPORT INFORMATION
  Report Type: Spontaneous
  Country: US (occurrence: US)
  Receive Date: 20130409
  Receipt Date: 20130409
  Transmission Date: 20140414
  Serious: No
  Sender: FDA-Public Use
  Company Number: US-ASTRAZENECA-2013SE20054

PATIENT
  Age: 68 Year
  Sex: Female
  Weight: 65.8 kg

DRUGS (11)
  1. ATENOLOL [Suspect]
     Indication: CARDIAC DISORDER
     Route: 048
     Dates: start: 2012
  2. ATENOLOL [Suspect]
     Indication: BLOOD PRESSURE
     Route: 048
     Dates: start: 2012
  3. NEXIUM [Suspect]
     Indication: BARRETT^S OESOPHAGUS
     Route: 048
  4. NEXIUM [Suspect]
     Indication: BARRETT^S OESOPHAGUS
     Route: 048
  5. PRILOSEC DELAYED-RELEASE CAPSULES [Suspect]
     Indication: BARRETT^S OESOPHAGUS
     Dosage: UNKNOWN DOSE DAILY
     Route: 048
  6. ALPRAZOLAM [Concomitant]
     Indication: MUSCLE SPASMS
     Route: 048
     Dates: start: 2000
  7. CHLORDIAZEPOXIDE [Concomitant]
     Indication: GASTROINTESTINAL PAIN
     Route: 048
  8. CLIDINIUM [Concomitant]
     Indication: GASTROINTESTINAL PAIN
     Route: 048
  9. OXYGEN [Concomitant]
     Indication: LUNG DISORDER
     Dosage: UNKNOWN DOSE AT NIGHT
     Route: 045
     Dates: start: 2009
  10. HYDROCHLOROTHIAZIDE [Concomitant]
     Indication: CARDIAC DISORDER
     Route: 048
  11. POTASSIUM [Concomitant]
     Indication: BLOOD POTASSIUM DECREASED
     Route: 048

REACTIONS (28)
  - Arthritis [Unknown]
  - Blood potassium decreased [Unknown]
  - Chest discomfort [Unknown]
  - Hypersomnia [Unknown]
  - Breast swelling [Unknown]
  - Chest discomfort [Unknown]
  - Sinus tachycardia [Unknown]
  - Fall [Unknown]
  - Cardiac disorder [Unknown]
  - Oesophageal stenosis [Unknown]
  - Adverse event [Unknown]
  - Anxiety [Unknown]
  - Stress [Unknown]
  - Road traffic accident [Unknown]
  - Fibromyalgia [Unknown]
  - Bone pain [Unknown]
  - Hypertension [Unknown]
  - Bone disorder [Unknown]
  - Abdominal distension [Unknown]
  - Feeling abnormal [Unknown]
  - Heart rate decreased [Unknown]
  - Dyspnoea [Unknown]
  - Sluggishness [Unknown]
  - Liver disorder [Unknown]
  - Abdominal pain upper [Unknown]
  - Constipation [Unknown]
  - Depression [Unknown]
  - Off label use [Unknown]
